FAERS Safety Report 7150576-9 (Version None)
Quarter: 2010Q4

REPORT INFORMATION
  Report Type: 
  Country: None (occurrence: None)
  Receive Date: 20101126
  Receipt Date: 20101117
  Transmission Date: 20110411
  Serious: Yes (Death, Hospitalization, Other)
  Sender: FDA-Public Use
  Company Number: 2010152123

PATIENT
  Age: 87 Year
  Sex: Female
  Weight: 50.8 kg

DRUGS (2)
  1. FRAGMIN [Suspect]
     Indication: DEEP VEIN THROMBOSIS
     Dosage: 10000 IU
  2. WARFARIN SODIUM [Concomitant]

REACTIONS (4)
  - ANTICOAGULATION DRUG LEVEL ABOVE THERAPEUTIC [None]
  - INJECTION SITE HAEMORRHAGE [None]
  - MALAISE [None]
  - RENAL FAILURE [None]
